FAERS Safety Report 9564239 (Version 2)
Quarter: 2013Q4

REPORT INFORMATION
  Report Type: Spontaneous
  Country: US (occurrence: US)
  Receive Date: 20130930
  Receipt Date: 20131022
  Transmission Date: 20140711
  Serious: Yes (Hospitalization)
  Sender: FDA-Public Use
  Company Number: US-BIOGENIDEC-2013BI020973

PATIENT
  Age: 33 Year
  Sex: Female

DRUGS (2)
  1. TYSABRI [Suspect]
     Indication: MULTIPLE SCLEROSIS
     Route: 042
     Dates: start: 20110602, end: 20121107
  2. TYSABRI [Suspect]
     Indication: MULTIPLE SCLEROSIS
     Route: 042

REACTIONS (5)
  - Convulsion [Recovered/Resolved]
  - Cerebral haemorrhage [Recovered/Resolved]
  - Eclampsia [Recovered/Resolved]
  - Arrested labour [Recovered/Resolved]
  - Cephalo-pelvic disproportion [Recovered/Resolved]
